FAERS Safety Report 23182803 (Version 1)
Quarter: 2023Q4

REPORT INFORMATION
  Report Type: Report from Study
  Country: DE (occurrence: DE)
  Receive Date: 20231114
  Receipt Date: 20231114
  Transmission Date: 20240109
  Serious: Yes (Other)
  Sender: FDA-Public Use
  Company Number: DE-SAMSUNG BIOEPIS-SB-2020-05317

PATIENT
  Age: 60 Year
  Sex: Female

DRUGS (2)
  1. METHOTREXATE SODIUM [Suspect]
     Active Substance: METHOTREXATE SODIUM
     Indication: Product used for unknown indication
     Dosage: UNKNOWN
     Route: 065
  2. ETANERCEPT [Concomitant]
     Active Substance: ETANERCEPT
     Indication: Rheumatoid arthritis
     Dosage: UNKNOWN
     Route: 065

REACTIONS (1)
  - Bone marrow oedema [Not Recovered/Not Resolved]

NARRATIVE: CASE EVENT DATE: 20221101
